FAERS Safety Report 15298612 (Version 1)
Quarter: 2018Q3

REPORT INFORMATION
  Report Type: Spontaneous
  Country: JP (occurrence: JP)
  Receive Date: 20180820
  Receipt Date: 20180820
  Transmission Date: 20181010
  Serious: Yes (Death)
  Sender: FDA-Public Use
  Company Number: JP-NAPPMUNDI-GBR-2017-0048856

PATIENT
  Sex: Male

DRUGS (1)
  1. OXIFAST [Suspect]
     Active Substance: OXYCODONE
     Indication: RECTAL CANCER
     Dosage: UNK
     Route: 042

REACTIONS (3)
  - Abdominal pain [Unknown]
  - Malignant neoplasm progression [Fatal]
  - Constipation [Unknown]
